FAERS Safety Report 9357009 (Version 3)
Quarter: 2013Q4

REPORT INFORMATION
  Report Type: Report from Study
  Country: US (occurrence: US)
  Receive Date: 20130620
  Receipt Date: 20131213
  Transmission Date: 20140711
  Serious: Yes (Other)
  Sender: FDA-Public Use
  Company Number: US-ROCHE-1238811

PATIENT
  Age: 32 Year
  Sex: Female
  Weight: 55.2 kg

DRUGS (8)
  1. PEG-INTERFERON ALFA 2A [Suspect]
     Indication: HEPATITIS C
     Route: 065
     Dates: start: 20120702, end: 20120924
  2. RIBAVIRIN [Suspect]
     Indication: HEPATITIS C
     Route: 065
     Dates: start: 20120702, end: 20120924
  3. TELAPREVIR [Suspect]
     Indication: HEPATITIS C
     Route: 065
     Dates: start: 20120702, end: 20120924
  4. IMODIUM [Concomitant]
     Route: 065
     Dates: start: 20120810
  5. LEXAPRO [Concomitant]
     Route: 065
     Dates: start: 20120810
  6. MARINOL (UNITED STATES) [Concomitant]
     Route: 065
     Dates: start: 20120904
  7. ACETAMINOPHEN [Concomitant]
     Route: 065
     Dates: start: 20120702
  8. LEVSIN [Concomitant]

REACTIONS (1)
  - Colitis microscopic [Unknown]
